FAERS Safety Report 5121172-X (Version None)
Quarter: 2006Q4

REPORT INFORMATION
  Report Type: 
  Country: None (occurrence: None)
  Receive Date: 20061002
  Receipt Date: 20060914
  Transmission Date: 20070319
  Serious: Yes (Hospitalization, Other)
  Sender: FDA-Public Use
  Company Number: US200609004310

PATIENT
  Age: 68 Year
  Sex: Female

DRUGS (2)
  1. FORTEO [Suspect]
     Dates: start: 20050901, end: 20060701
  2. FORTEO [Concomitant]

REACTIONS (4)
  - BLOOD CALCIUM INCREASED [None]
  - HEPATOSPLENOMEGALY [None]
  - HYPERSOMNIA [None]
  - LOSS OF CONSCIOUSNESS [None]
